FAERS Safety Report 6121230-7 (Version None)
Quarter: 2009Q1

REPORT INFORMATION
  Report Type: 
  Country: None (occurrence: None)
  Receive Date: 20090312
  Receipt Date: 20090312
  Transmission Date: 20090719
  Serious: Yes (Other)
  Sender: FDA-Public Use
  Company Number: None

PATIENT
  Sex: Female
  Weight: 9.9791 kg

DRUGS (1)
  1. AMOXICILLIN [Suspect]
     Indication: EAR INFECTION
     Dosage: 400MG/5ML 1.5 TEASPOON BID PO
     Route: 048
     Dates: start: 20090305, end: 20090306

REACTIONS (2)
  - RASH GENERALISED [None]
  - URTICARIA [None]
